FAERS Safety Report 13435098 (Version 3)
Quarter: 2017Q3

REPORT INFORMATION
  Report Type: Spontaneous
  Country: US (occurrence: US)
  Receive Date: 20170412
  Receipt Date: 20170731
  Transmission Date: 20171127
  Serious: Yes (Other)
  Sender: FDA-Public Use
  Company Number: US-BAYER-2017-066498

PATIENT
  Age: 45 Year
  Sex: Female
  Weight: 70.3 kg

DRUGS (2)
  1. AFRIN ORIGINAL [Suspect]
     Active Substance: OXYMETAZOLINE HYDROCHLORIDE
     Indication: PRODUCT USED FOR UNKNOWN INDICATION
     Dosage: CONSUMER USING THIS FOR YEARS
     Route: 055
     Dates: start: 1987, end: 20170412
  2. MULTIVITAMINS [Concomitant]
     Active Substance: VITAMINS
     Dosage: UNK

REACTIONS (4)
  - Incorrect drug administration duration [Unknown]
  - Drug dependence [Unknown]
  - Product use complaint [None]
  - Wrong technique in product usage process [Unknown]

NARRATIVE: CASE EVENT DATE: 1987
